FAERS Safety Report 21519393 (Version 1)
Quarter: 2022Q4

REPORT INFORMATION
  Report Type: Report from Study
  Country: US (occurrence: US)
  Receive Date: 20221028
  Receipt Date: 20221028
  Transmission Date: 20230113
  Serious: Yes (Other)
  Sender: FDA-Public Use
  Company Number: US-JNJFOC-20221036909

PATIENT
  Sex: Female

DRUGS (6)
  1. TYLENOL PM [Suspect]
     Active Substance: ACETAMINOPHEN\DIPHENHYDRAMINE
     Indication: Loss of consciousness
     Dosage: THREE TYLENOL PM
     Route: 065
     Dates: start: 2022
  2. BENADRYL [Suspect]
     Active Substance: DIPHENHYDRAMINE HYDROCHLORIDE
     Indication: Loss of consciousness
     Route: 065
  3. ATIVAN [Suspect]
     Active Substance: LORAZEPAM
     Indication: Loss of consciousness
     Route: 065
     Dates: start: 2022
  4. MELATONIN [Suspect]
     Active Substance: MELATONIN
     Indication: Loss of consciousness
     Route: 065
     Dates: start: 2022
  5. UNISOM SLEEPMELTS [Suspect]
     Active Substance: DIPHENHYDRAMINE HYDROCHLORIDE
     Indication: Loss of consciousness
     Route: 065
  6. IBUPROFEN PM [Suspect]
     Active Substance: DIPHENHYDRAMINE CITRATE\IBUPROFEN
     Indication: Loss of consciousness
     Route: 065

REACTIONS (2)
  - Drug abuse [Unknown]
  - Suicide attempt [Unknown]

NARRATIVE: CASE EVENT DATE: 20220101
